FAERS Safety Report 9164990 (Version 2)
Quarter: 2013Q1

REPORT INFORMATION
  Report Type: Spontaneous
  Country: GB (occurrence: None)
  Receive Date: 20130228
  Receipt Date: 20130329
  Transmission Date: 20140127
  Serious: Yes (Other)
  Sender: FDA-Public Use
  Company Number: AUR-APL-2013-01649

PATIENT
  Age: 39 Year
  Sex: Female
  Weight: 70 kg

DRUGS (3)
  1. NEVIRAPINE [Suspect]
     Indication: HIV INFECTION
     Dosage: (400 MG, 1 IN 1D)
     Dates: start: 20060302
  2. TRUVADA [Suspect]
     Indication: HIV INFECTION
     Dosage: 1 DOSAGE FORMS (1 DOSAGE FORMS, 1 IN D), UNKNOWN
     Dates: start: 20090901
  3. ENGERIX B (HEPATITIS B VACCINE) [Concomitant]

REACTIONS (4)
  - Exposure during pregnancy [None]
  - Abortion induced [None]
  - Pregnancy [None]
  - Abortion spontaneous [None]
